FAERS Safety Report 5536506-1 (Version None)
Quarter: 2007Q4

REPORT INFORMATION
  Report Type: 
  Country: None (occurrence: None)
  Receive Date: 20071206
  Receipt Date: 20071010
  Transmission Date: 20080405
  Serious: Yes (Hospitalization)
  Sender: FDA-Public Use
  Company Number: US-AMGEN-STX247461

PATIENT
  Sex: Female

DRUGS (4)
  1. ENBREL [Suspect]
     Indication: RHEUMATOID ARTHRITIS
     Route: 058
     Dates: start: 20070301
  2. ENBREL [Suspect]
     Indication: PSORIATIC ARTHROPATHY
  3. ENBREL [Suspect]
     Indication: PSORIASIS
  4. ENBREL [Suspect]
     Indication: OSTEOARTHRITIS

REACTIONS (11)
  - ANAEMIA [None]
  - ARTHRITIS [None]
  - BREAST MICROCALCIFICATION [None]
  - CELLULITIS [None]
  - DEPRESSION [None]
  - DIABETIC NEUROPATHY [None]
  - INTERVERTEBRAL DISC DEGENERATION [None]
  - PAIN [None]
  - PANIC ATTACK [None]
  - PSORIASIS [None]
  - SCOLIOSIS [None]
